FAERS Safety Report 6023860-X (Version None)
Quarter: 2008Q4

REPORT INFORMATION
  Report Type: 
  Country: None (occurrence: None)
  Receive Date: 20081230
  Receipt Date: 20081217
  Transmission Date: 20090506
  Serious: Yes (Hospitalization)
  Sender: FDA-Public Use
  Company Number: JP-ASTRAZENECA-2008AP09211

PATIENT
  Age: 32026 Day
  Sex: Male

DRUGS (3)
  1. MEROPENEM [Suspect]
     Indication: PNEUMONIA
     Route: 042
     Dates: start: 20081003, end: 20081003
  2. MEROPENEM [Suspect]
     Route: 042
     Dates: start: 20081004, end: 20081005
  3. PICILLIBACTA [Concomitant]
     Indication: PNEUMONIA
     Route: 041
     Dates: start: 20081001, end: 20081002

REACTIONS (2)
  - HEPATIC FUNCTION ABNORMAL [None]
  - PNEUMONITIS [None]
